FAERS Safety Report 4857071-8 (Version None)
Quarter: 2005Q4

REPORT INFORMATION
  Report Type: 
  Country: None (occurrence: None)
  Receive Date: 20051219
  Receipt Date: 20041220
  Transmission Date: 20060501
  Serious: No
  Sender: FDA-Public Use
  Company Number: US-GLAXOSMITHKLINE-A0538194A

PATIENT
  Age: 34 Year
  Sex: Male

DRUGS (1)
  1. NICODERM CQ [Suspect]
     Dates: end: 20041218

REACTIONS (5)
  - COUGH [None]
  - DIZZINESS [None]
  - INFLUENZA [None]
  - NASAL CONGESTION [None]
  - PYREXIA [None]
